FAERS Safety Report 20875282 (Version 5)
Quarter: 2023Q1

REPORT INFORMATION
  Report Type: Other
  Country: CA (occurrence: None)
  Receive Date: 20220526
  Receipt Date: 20230206
  Transmission Date: 20230417
  Serious: No
  Sender: FDA-Public Use
  Company Number: CA-ROCHE-3004958

PATIENT
  Age: 44 Year
  Sex: Female

DRUGS (3)
  1. OCREVUS [Suspect]
     Active Substance: OCRELIZUMAB
     Indication: Relapsing-remitting multiple sclerosis
     Dosage: THEN 600 MG 1 IN EVERY 6 MONTHS.?CONCENTRATE FOR INTRAVENOUS INFUSION
     Route: 042
     Dates: start: 20190628
  2. OCREVUS [Suspect]
     Active Substance: OCRELIZUMAB
     Route: 042
     Dates: start: 20190628
  3. RABEPRAZOLE [Concomitant]
     Active Substance: RABEPRAZOLE

REACTIONS (7)
  - Palpitations [Unknown]
  - Feeling abnormal [Unknown]
  - Hyperhidrosis [Unknown]
  - Feeling hot [Unknown]
  - SARS-CoV-2 test positive [Recovered/Resolved]
  - Bacterial infection [Recovered/Resolved]
  - Chest discomfort [Unknown]

NARRATIVE: CASE EVENT DATE: 20220408
